FAERS Safety Report 8442816-0 (Version None)
Quarter: 2012Q2

REPORT INFORMATION
  Report Type: 
  Country: None (occurrence: None)
  Receive Date: 20120615
  Receipt Date: 20120606
  Transmission Date: 20120825
  Serious: Yes (Other)
  Sender: FDA-Public Use
  Company Number: US-ASTRAZENECA-2011SE03168

PATIENT
  Age: 45 Year
  Sex: Female

DRUGS (11)
  1. PEPCID [Concomitant]
  2. ZOMIG [Suspect]
     Route: 048
  3. PULMICORT FLEXHALER [Suspect]
     Route: 055
  4. RHINOCORT [Suspect]
     Route: 045
  5. NEXIUM [Suspect]
     Route: 048
  6. SYMBICORT [Suspect]
     Route: 055
  7. SEROQUEL [Suspect]
     Indication: BIPOLAR DISORDER
     Route: 048
  8. SEROQUEL [Suspect]
     Indication: BIPOLAR I DISORDER
     Route: 048
  9. CODEINE SULFATE [Concomitant]
  10. ADVAIR DISKUS 100/50 [Concomitant]
  11. MORPHINE [Concomitant]

REACTIONS (20)
  - PULMONARY EMBOLISM [None]
  - MALAISE [None]
  - WEIGHT DECREASED [None]
  - APHASIA [None]
  - PANIC ATTACK [None]
  - INTENTIONAL DRUG MISUSE [None]
  - DRUG DOSE OMISSION [None]
  - HALLUCINATION, AUDITORY [None]
  - HEADACHE [None]
  - FIBROMYALGIA [None]
  - TREMOR [None]
  - OEDEMA PERIPHERAL [None]
  - PNEUMONIA [None]
  - PERIPHERAL EMBOLISM [None]
  - INSOMNIA [None]
  - CHRONIC OBSTRUCTIVE PULMONARY DISEASE [None]
  - RESPIRATORY DISORDER [None]
  - FEAR [None]
  - BIPOLAR DISORDER [None]
  - DEPRESSION [None]
